FAERS Safety Report 9948559 (Version 2)
Quarter: 2014Q1

REPORT INFORMATION
  Report Type: Report from Study
  Country: ID (occurrence: ID)
  Receive Date: 20140303
  Receipt Date: 20140313
  Transmission Date: 20141002
  Serious: Yes (Other)
  Sender: FDA-Public Use
  Company Number: ID-ABBVIE-14P-079-1208328-00

PATIENT
  Sex: Female

DRUGS (2)
  1. DEPAKOTE ER [Suspect]
     Indication: EPILEPSY
     Route: 048
  2. DEPAKOTE ER [Suspect]
     Route: 048

REACTIONS (1)
  - Syncope [Unknown]
